FAERS Safety Report 10103019 (Version 2)
Quarter: 2014Q2

REPORT INFORMATION
  Report Type: Spontaneous
  Country: US (occurrence: US)
  Receive Date: 20140424
  Receipt Date: 20140424
  Transmission Date: 20141212
  Serious: No
  Sender: FDA-Public Use
  Company Number: US-BRISTOL-MYERS SQUIBB COMPANY-20072179

PATIENT
  Age: 74 Year
  Sex: Male
  Weight: 99.77 kg

DRUGS (4)
  1. ELIQUIS [Suspect]
     Indication: ATRIAL FIBRILLATION
     Dates: start: 20140116
  2. PHENTERMINE [Concomitant]
  3. RESTORIL [Concomitant]
  4. ZOCOR [Concomitant]

REACTIONS (1)
  - Nasopharyngitis [Unknown]
